FAERS Safety Report 5196992-6 (Version None)
Quarter: 2006Q4

REPORT INFORMATION
  Report Type: 
  Country: None (occurrence: None)
  Receive Date: 20061227
  Receipt Date: 20061215
  Transmission Date: 20070319
  Serious: Yes (Other)
  Sender: FDA-Public Use
  Company Number: 2006154416

PATIENT
  Sex: Male

DRUGS (4)
  1. CARDURA XL [Suspect]
     Indication: HYPERTENSION
     Dosage: 4 MG (4 MG, 1 IN 24 HR), ORAL
     Route: 048
  2. NORVASC [Concomitant]
  3. METOPROLOL TARTRATE [Concomitant]
  4. ACE INHIBITOR NOS (ACE INHIBITOR NOS) [Concomitant]

REACTIONS (2)
  - FACE OEDEMA [None]
  - OEDEMA PERIPHERAL [None]
